FAERS Safety Report 10663768 (Version 3)
Quarter: 2015Q1

REPORT INFORMATION
  Report Type: Report from Study
  Country: US (occurrence: US)
  Receive Date: 20141219
  Receipt Date: 20150121
  Transmission Date: 20150720
  Serious: Yes (Death, Other)
  Sender: FDA-Public Use
  Company Number: US-AMGEN-USASL2014098623

PATIENT
  Age: 87 Year
  Sex: Female
  Weight: 58.5 kg

DRUGS (19)
  1. CALCIUM CARBONATE AND VITAMIN D [Concomitant]
     Dosage: 600 MG-400 INTL UNITS
     Route: 048
     Dates: start: 20130618
  2. TAXOL [Concomitant]
     Active Substance: PACLITAXEL
     Dosage: 6 MG/ML, PRN ONC
     Route: 042
     Dates: start: 20130618
  3. DULCOLAX (BISACODYL) [Concomitant]
     Active Substance: BISACODYL
     Dosage: 100 MG, QD
     Route: 048
     Dates: start: 20130618
  4. PROAIR HFA [Concomitant]
     Active Substance: ALBUTEROL SULFATE
     Dosage: 90 MUG, 2 PUFFS Q4H PRN
     Dates: start: 20130422
  5. TIMOLOL [Concomitant]
     Active Substance: TIMOLOL
     Dosage: 0.5 %, 1 DROP AT EACH EYE AT BED TIME
     Dates: start: 20121017
  6. MAGNESIUM OXIDE. [Concomitant]
     Active Substance: MAGNESIUM OXIDE
     Dosage: 400 MG, 2 TAB. TID
     Route: 048
     Dates: start: 20121017
  7. PROLIA [Suspect]
     Active Substance: DENOSUMAB
     Dosage: UNK
     Route: 058
     Dates: start: 20121114, end: 20121114
  8. SPIRONOLACTONE. [Concomitant]
     Active Substance: SPIRONOLACTONE
     Dosage: 50 MG, QD
     Route: 048
     Dates: start: 20121114
  9. TIAZAC [Concomitant]
     Active Substance: DILTIAZEM HYDROCHLORIDE
     Dosage: 120 MG, QD AT BED TIME
     Route: 048
     Dates: start: 20121114
  10. FLUZONE                            /00780601/ [Concomitant]
     Dosage: UNK
     Dates: start: 20120926
  11. DEXAMETHASONE. [Concomitant]
     Active Substance: DEXAMETHASONE
     Dosage: 4 MG, BID
     Route: 048
     Dates: start: 20130618
  12. LIPITOR [Concomitant]
     Active Substance: ATORVASTATIN CALCIUM
     Dosage: 40 MG, QD
     Route: 048
     Dates: start: 20121017
  13. FLONASE                            /00908302/ [Concomitant]
     Dosage: 0.5 MG, 2 SPRAYS/NOSTRIL QD PRN
     Route: 045
     Dates: start: 20110919
  14. NEXIUM [Concomitant]
     Active Substance: ESOMEPRAZOLE MAGNESIUM
     Dosage: 40 MG, QD
     Route: 048
     Dates: start: 20121217
  15. VITAMIN D3 [Concomitant]
     Active Substance: CHOLECALCIFEROL
     Dosage: 1000 UNIT, QD
     Route: 048
     Dates: start: 20120117
  16. ZOFRAN                             /00955301/ [Concomitant]
     Active Substance: ONDANSETRON HYDROCHLORIDE
     Dosage: 8 MG, QD AS NEEDED AFTER CHEMO
     Route: 048
     Dates: start: 20130618
  17. PROLIA [Suspect]
     Active Substance: DENOSUMAB
     Indication: OSTEOPOROSIS POSTMENOPAUSAL
     Dosage: 60 MG, Q6MO
     Route: 058
     Dates: start: 20120516
  18. CARBOPLATIN. [Concomitant]
     Active Substance: CARBOPLATIN
     Dosage: 10 MG/ML, AS PER ONC
     Route: 042
     Dates: start: 20130618
  19. SENNA [Concomitant]
     Active Substance: SENNA LEAF\SENNOSIDES\SENNOSIDES A AND B
     Dosage: 8.6 MG, BID PRN, AS NEEDED
     Route: 048
     Dates: start: 20130618

REACTIONS (17)
  - Umbilical hernia [Unknown]
  - Nausea [Unknown]
  - Malignant neoplasm of uterine adnexa [Unknown]
  - Peritoneal disorder [Unknown]
  - Diarrhoea [Unknown]
  - Ascites [Unknown]
  - Magnesium metabolism disorder [Unknown]
  - Abdominal pain [Unknown]
  - Renal cyst [Unknown]
  - Ovarian cancer metastatic [Fatal]
  - Skin ulcer [Unknown]
  - Cardiac failure [Fatal]
  - Pneumonia bacterial [Unknown]
  - Anxiety [Unknown]
  - Metastases to peritoneum [Unknown]
  - Aortic aneurysm [Unknown]
  - Pain [Unknown]

NARRATIVE: CASE EVENT DATE: 20120720
